FAERS Safety Report 11095071 (Version 8)
Quarter: 2019Q2

REPORT INFORMATION
  Report Type: Report from Study
  Country: US (occurrence: US)
  Receive Date: 20150506
  Receipt Date: 20190626
  Transmission Date: 20190711
  Serious: Yes (Hospitalization, Other)
  Sender: FDA-Public Use
  Company Number: US-SA-2014SA056948

PATIENT
  Age: 68 Year
  Sex: Male

DRUGS (8)
  1. INSULIN GLULISINE [Suspect]
     Active Substance: INSULIN GLULISINE
     Dosage: 6-8 UNITS, 6ID
     Route: 058
  2. HUMULIN NOS [Concomitant]
     Active Substance: INSULIN HUMAN
     Dosage: UNK
  3. LEVEMIR [Concomitant]
     Active Substance: INSULIN DETEMIR
     Dosage: UNK UNK,BID
     Route: 065
  4. INSULIN GLULISINE [Suspect]
     Active Substance: INSULIN GLULISINE
     Indication: TYPE 1 DIABETES MELLITUS
     Dosage: DOSE AND FREQUENCY: VARIES/CARB COUNTING
     Route: 058
  5. TOUJEO [Concomitant]
     Active Substance: INSULIN GLARGINE
     Indication: TYPE 1 DIABETES MELLITUS
     Dosage: UNK
  6. INSULIN GLULISINE [Suspect]
     Active Substance: INSULIN GLULISINE
     Dosage: DOSE OF 4-6 UNITS 3 TID WITH 8-10 IF BLOOD SUGAR UP HE IS CURRENTLY USING 3/10 UNITS TID
  7. INSULIN GLULISINE [Suspect]
     Active Substance: INSULIN GLULISINE
     Dosage: DOSE AND FREQUENCY: SLIDING SCALE WITH  MEALS
  8. LANTUS [Concomitant]
     Active Substance: INSULIN GLARGINE
     Indication: TYPE 1 DIABETES MELLITUS
     Dosage: HE TOOK 27-28 IN THE AFTERNOON AND 6-8 UNITS AT NIGHT

REACTIONS (29)
  - Tremor [Unknown]
  - Blood testosterone decreased [Unknown]
  - Therapeutic product effect decreased [Unknown]
  - Pneumonia [Unknown]
  - Amnesia [Unknown]
  - Product storage error [Unknown]
  - Muscle spasms [Recovered/Resolved]
  - Polydipsia [Recovered/Resolved]
  - Back pain [Unknown]
  - Anaemia [Unknown]
  - Peptic ulcer [Unknown]
  - Gastric infection [Unknown]
  - Transient ischaemic attack [Unknown]
  - Leg amputation [Unknown]
  - Blood glucose increased [Not Recovered/Not Resolved]
  - Hernia repair [Unknown]
  - Blood glucose increased [Recovered/Resolved]
  - Visual impairment [Unknown]
  - Blood glucose decreased [Unknown]
  - Injection site mass [Recovered/Resolved]
  - Drug ineffective [Unknown]
  - Impaired gastric emptying [Unknown]
  - Neuropathy peripheral [Unknown]
  - Weight increased [Unknown]
  - Malaise [Unknown]
  - Product dose omission [Unknown]
  - Expired device used [Unknown]
  - Eye haemorrhage [Unknown]
  - Cataract [Unknown]

NARRATIVE: CASE EVENT DATE: 20170809
